FAERS Safety Report 7360359-2 (Version None)
Quarter: 2011Q1

REPORT INFORMATION
  Report Type: 
  Country: None (occurrence: None)
  Receive Date: 20110304
  Receipt Date: 20110224
  Transmission Date: 20110831
  Serious: Yes (Disabling)
  Sender: FDA-Public Use
  Company Number: 028203

PATIENT
  Age: 52 Year
  Sex: Male
  Weight: 70 kg

DRUGS (3)
  1. KEPPRA [Suspect]
     Indication: EPILEPSY
     Dosage: 1000 MG BID, ORAL
     Route: 048
     Dates: start: 20070101
  2. PREGABALIN [Suspect]
     Indication: EPILEPSY
     Dosage: 300 MG, BID, ORAL
     Route: 048
     Dates: start: 20070101
  3. ERGENYL CHRONO (ERGENYL CHRONO) [Suspect]
     Indication: EPILEPSY
     Dosage: 1500 MG 500 MG/1000MG, ORAL
     Route: 048
     Dates: start: 20050101

REACTIONS (4)
  - VISUAL ACUITY REDUCED [None]
  - REFRACTION DISORDER [None]
  - OPTIC ATROPHY [None]
  - VISUAL FIELD DEFECT [None]
